FAERS Safety Report 14949177 (Version 1)
Quarter: 2018Q2

REPORT INFORMATION
  Report Type: Spontaneous
  Country: JP (occurrence: JP)
  Receive Date: 20180529
  Receipt Date: 20180529
  Transmission Date: 20180711
  Serious: Yes (Other)
  Sender: FDA-Public Use
  Company Number: JP-PFIZER INC-2014128279

PATIENT
  Age: 72 Year
  Sex: Female

DRUGS (5)
  1. MOHRUS [Concomitant]
     Active Substance: KETOPROFEN
     Dosage: UNK
  2. TAKEPRON [Concomitant]
     Active Substance: LANSOPRAZOLE
     Dosage: UNK
  3. RHEUMATREX [Suspect]
     Active Substance: METHOTREXATE SODIUM
     Indication: RHEUMATOID ARTHRITIS
     Dosage: 10 MG, WEEKLY
     Route: 048
     Dates: start: 2009, end: 201307
  4. HYPEN /00613801/ [Concomitant]
     Active Substance: ETODOLAC
     Dosage: UNK
  5. PREDONINE [Concomitant]
     Active Substance: PREDNISOLONE
     Dosage: UNK

REACTIONS (2)
  - Lymphoproliferative disorder [Recovering/Resolving]
  - Oral cavity fistula [Recovering/Resolving]

NARRATIVE: CASE EVENT DATE: 201306
